FAERS Safety Report 4613322-6 (Version None)
Quarter: 2005Q1

REPORT INFORMATION
  Report Type: 
  Country: None (occurrence: None)
  Receive Date: 20050315
  Receipt Date: 20050301
  Transmission Date: 20050727
  Serious: Yes (Hospitalization)
  Sender: FDA-Public Use
  Company Number: GBT050301991

PATIENT
  Age: 49 Year
  Sex: Male
  Weight: 90 kg

DRUGS (1)
  1. DULOXETINE HYDROCHLORIDE [Suspect]
     Indication: DEPRESSION
     Dosage: 60 MG/2 DAY
     Dates: start: 20050114, end: 20050211

REACTIONS (3)
  - BLINDNESS TRANSIENT [None]
  - HEADACHE [None]
  - MIGRAINE [None]
